FAERS Safety Report 17070642 (Version 1)
Quarter: 2019Q4

REPORT INFORMATION
  Report Type: Report from Study
  Country: US (occurrence: US)
  Receive Date: 20191125
  Receipt Date: 20191125
  Transmission Date: 20200122
  Serious: Yes (Hospitalization)
  Sender: FDA-Public Use
  Company Number: US-EISAI MEDICAL RESEARCH-EC-2019-065107

PATIENT
  Age: 80 Year
  Sex: Female

DRUGS (18)
  1. LORAZEPAM. [Concomitant]
     Active Substance: LORAZEPAM
  2. GINGER. [Concomitant]
     Active Substance: GINGER
  3. COQ10 [Concomitant]
     Active Substance: UBIDECARENONE
  4. KEYTRUDA [Suspect]
     Active Substance: PEMBROLIZUMAB
     Indication: PRODUCT USED FOR UNKNOWN INDICATION
     Dosage: DOSE AND FREQUENCY UNKNOWN
     Route: 042
     Dates: end: 201911
  5. FISH OIL [Concomitant]
     Active Substance: FISH OIL
  6. SINGULAIR [Concomitant]
     Active Substance: MONTELUKAST SODIUM
  7. IMODIUM A-D [Concomitant]
     Active Substance: LOPERAMIDE HYDROCHLORIDE
  8. VITAMIN C [Concomitant]
     Active Substance: ASCORBIC ACID
  9. NORCO [Concomitant]
     Active Substance: ACETAMINOPHEN\HYDROCODONE BITARTRATE
  10. IBUPROFEN. [Concomitant]
     Active Substance: IBUPROFEN
  11. MAGNESIUM [Concomitant]
     Active Substance: MAGNESIUM
  12. MYRBETRIQ [Concomitant]
     Active Substance: MIRABEGRON
  13. MULTIVITAMIN [Concomitant]
     Active Substance: VITAMINS
  14. POTASSIUM [Concomitant]
     Active Substance: POTASSIUM
  15. LENVIMA [Suspect]
     Active Substance: LENVATINIB
     Indication: ENDOMETRIAL CANCER
     Route: 048
     Dates: start: 20191031, end: 201911
  16. KEYTRUDA [Suspect]
     Active Substance: PEMBROLIZUMAB
     Dosage: DOSE AND FREQUENCY UNKNOWN
     Route: 042
     Dates: start: 201911
  17. VITAMIN D [Concomitant]
     Active Substance: VITAMIN D NOS
  18. METOPROLOL-HCTZ [Concomitant]

REACTIONS (5)
  - Urinary tract infection [Unknown]
  - Kidney infection [Unknown]
  - Hypertension [Recovered/Resolved]
  - Blood urine present [Unknown]
  - Pruritus [Unknown]

NARRATIVE: CASE EVENT DATE: 201911
